FAERS Safety Report 9867155 (Version 1)
Quarter: 2014Q1

REPORT INFORMATION
  Report Type: Spontaneous
  Country: US (occurrence: US)
  Receive Date: 20140204
  Receipt Date: 20140204
  Transmission Date: 20141002
  Serious: No
  Sender: FDA-Public Use
  Company Number: US-009507513-1401USA011166

PATIENT
  Age: 54 Year
  Sex: Male

DRUGS (3)
  1. PEGINTRON [Suspect]
     Indication: HEPATITIS C
     Dosage: 0.5 CC, ONCE A WEEK
     Route: 058
     Dates: start: 20140118
  2. RIBAVIRIN (WARRICK) [Suspect]
     Indication: HEPATITIS C
     Dosage: 400 MG, BID (TWICE A DAY)
     Route: 048
     Dates: start: 20140118
  3. SOVALDI [Concomitant]
     Dosage: UNK

REACTIONS (8)
  - Feeling abnormal [Unknown]
  - Pain [Unknown]
  - Back pain [Unknown]
  - Chills [Unknown]
  - Decreased appetite [Unknown]
  - Headache [Unknown]
  - Exposure via direct contact [Unknown]
  - Device leakage [Unknown]
